FAERS Safety Report 9266148 (Version 1)
Quarter: 2013Q2

REPORT INFORMATION
  Report Type: Spontaneous
  Country: CO (occurrence: CO)
  Receive Date: 20130502
  Receipt Date: 20130502
  Transmission Date: 20140414
  Serious: Yes (Hospitalization, Other)
  Sender: FDA-Public Use
  Company Number: CO-AMGEN-COLSP2013030052

PATIENT
  Age: 79 Year
  Sex: Male

DRUGS (2)
  1. ENBREL [Suspect]
     Indication: RHEUMATOID ARTHRITIS
     Dosage: 50 MG, WEEKLY
     Route: 058
     Dates: start: 2011
  2. APRONAX [Concomitant]
     Indication: INFLAMMATION
     Dosage: 250 MG, AS NEEDED
     Route: 048
     Dates: start: 2008

REACTIONS (2)
  - Prostatic disorder [Unknown]
  - Arrhythmia [Not Recovered/Not Resolved]
